FAERS Safety Report 5324841-1 (Version None)
Quarter: 2007Q2

REPORT INFORMATION
  Report Type: 
  Country: None (occurrence: None)
  Receive Date: 20070515
  Receipt Date: 20070510
  Transmission Date: 20071010
  Serious: Yes (Death)
  Sender: FDA-Public Use
  Company Number: CH-JNJFOC-20070502913

PATIENT
  Sex: Female
  Weight: 49 kg

DRUGS (2)
  1. DOXORUBICIN HCL [Suspect]
     Dosage: 4 CYCLES
     Route: 042
  2. DOXORUBICIN HCL [Suspect]
     Indication: BREAST CANCER METASTATIC
     Route: 042

REACTIONS (6)
  - ASTHENIA [None]
  - HAEMATOTOXICITY [None]
  - HAEMOGLOBIN DECREASED [None]
  - LEUKOPENIA [None]
  - NEUTROPENIA [None]
  - PULMONARY EMBOLISM [None]
